FAERS Safety Report 6977955-4 (Version None)
Quarter: 2010Q3

REPORT INFORMATION
  Report Type: 
  Country: None (occurrence: None)
  Receive Date: 20100913
  Receipt Date: 20100901
  Transmission Date: 20110219
  Serious: Yes (Hospitalization)
  Sender: FDA-Public Use
  Company Number: CA-PFIZER INC-2010110269

PATIENT
  Age: 59 Year
  Sex: Female
  Weight: 49.9 kg

DRUGS (9)
  1. BLINDED *NO SUBJECT DRUG [Suspect]
     Dosage: 50 MG, DAILY, FOR 28 DAYS
     Dates: start: 20100728
  2. BLINDED *PLACEBO [Suspect]
     Dosage: 50 MG, DAILY, FOR 28 DAYS
     Dates: start: 20100728
  3. SUNITINIB MALATE [Suspect]
     Dosage: 50 MG, DAILY, FOR 28 DAYS
     Dates: start: 20100728
  4. PANTOLOC ^NYCOMED^ [Concomitant]
     Indication: ABDOMINAL DISCOMFORT
     Dosage: UNK
     Route: 048
     Dates: start: 20080101
  5. BUSCOPAN [Concomitant]
     Indication: ABDOMINAL PAIN UPPER
     Dosage: UNK
     Route: 048
     Dates: start: 20100101
  6. ZOPICLONE [Concomitant]
     Indication: INSOMNIA
     Dosage: UNK
     Route: 048
     Dates: start: 20100101
  7. LACTULOSE [Concomitant]
     Indication: PROPHYLAXIS
     Dosage: UNK
     Route: 048
     Dates: start: 20100201
  8. SENOKOT [Concomitant]
     Indication: PROPHYLAXIS
     Dosage: UNK
     Route: 048
     Dates: start: 20100201
  9. COLACE [Concomitant]
     Indication: PROPHYLAXIS
     Dosage: UNK
     Route: 048
     Dates: start: 20100201

REACTIONS (1)
  - SMALL INTESTINAL OBSTRUCTION [None]
